FAERS Safety Report 8349519-1 (Version None)
Quarter: 2012Q2

REPORT INFORMATION
  Report Type: 
  Country: None (occurrence: None)
  Receive Date: 20120508
  Receipt Date: 20120508
  Transmission Date: 20120825
  Serious: Yes (Death, Hospitalization)
  Sender: FDA-Public Use
  Company Number: None

PATIENT
  Sex: Male
  Weight: 8.8 kg

DRUGS (10)
  1. MERCAPTOPURINE [Suspect]
     Dosage: 1890 MG
     Dates: end: 20120423
  2. CMV IMMUNE GLOBULIN [Concomitant]
  3. FOSCARNET [Concomitant]
  4. TRIMETHOPRIM [Concomitant]
  5. DEXAMETHASONE [Suspect]
  6. VINCRISTINE SULFATE [Suspect]
     Dosage: 1.2 MG
     Dates: end: 20120327
  7. IMMUNE GLOBULIN NOS [Concomitant]
  8. METHOTREXATE [Suspect]
     Dosage: 80 MG
     Dates: end: 20120417
  9. GANCICLOVIR [Concomitant]
  10. CIDOFOVIR [Concomitant]

REACTIONS (3)
  - CYTOMEGALOVIRUS COLITIS [None]
  - PNEUMONIA CYTOMEGALOVIRAL [None]
  - PNEUMOCYSTIS JIROVECI INFECTION [None]
